FAERS Safety Report 4452980-6 (Version None)
Quarter: 2004Q3

REPORT INFORMATION
  Report Type: 
  Country: None (occurrence: None)
  Receive Date: 20040916
  Receipt Date: 20040831
  Transmission Date: 20050211
  Serious: Yes (Hospitalization)
  Sender: FDA-Public Use
  Company Number: 203895

PATIENT
  Age: 45 Year
  Sex: Female
  Weight: 45.3597 kg

DRUGS (5)
  1. AVONEX [Suspect]
     Indication: MULTIPLE SCLEROSIS
     Dosage: 30 MCG QW IM
     Route: 030
     Dates: start: 19960101, end: 20030801
  2. AVONEX [Suspect]
     Indication: MULTIPLE SCLEROSIS
     Dosage: 30 MCG QW IM
     Route: 030
     Dates: start: 20030801
  3. MULTI VITAMIN WITH IRON [Concomitant]
  4. VITAMIN B-12 [Concomitant]
  5. KLONOPIN [Concomitant]

REACTIONS (8)
  - INFLUENZA LIKE ILLNESS [None]
  - INFUSION SITE BRUISING [None]
  - INGUINAL HERNIA [None]
  - INJECTION SITE HAEMORRHAGE [None]
  - RECTAL TENESMUS [None]
  - URINARY INCONTINENCE [None]
  - URINARY RETENTION [None]
  - UTERINE LEIOMYOMA [None]
